FAERS Safety Report 10203509 (Version 2)
Quarter: 2014Q2

REPORT INFORMATION
  Report Type: Spontaneous
  Country: US (occurrence: None)
  Receive Date: 20140523
  Receipt Date: 20140604
  Transmission Date: 20141212
  Serious: Yes (Other)
  Sender: FDA-Public Use
  Company Number: 2014-US-006026

PATIENT
  Age: 31 Year
  Sex: Female
  Weight: 58 kg

DRUGS (8)
  1. XYREM (SODIUM OXYBATE) ORAL SOLUTION, 500MG/ML [Suspect]
     Indication: NARCOLEPSY
     Route: 048
     Dates: start: 200807, end: 2008
  2. XYREM (SODIUM OXYBATE) ORAL SOLUTION, 500MG/ML [Suspect]
     Indication: NARCOLEPSY
     Route: 048
     Dates: start: 200807, end: 2008
  3. ADDERALL (AMFETAMINE ASPARTATE, AMFETAMINE SULFATE, DEXAMFETAMINE SACCHARATE, DEXAMFETAMINE SULFATE) [Suspect]
     Indication: NARCOLEPSY
     Route: 048
  4. ADDERALL (AMFETAMINE ASPARTATE, AMFETAMINE SULFATE, DEXAMFETAMINE SACCHARATE, DEXAMFETAMINE SULFATE) [Suspect]
     Indication: NARCOLEPSY
     Route: 048
  5. SYNTHROID (LEVOTHYROXINE SODIUM) [Concomitant]
  6. ZARAH (DROSPIRENONE, ETHINYLESTRADIOL) [Concomitant]
  7. PROZAC (FLUOXETINE HYDROCHLORIDE) [Concomitant]
  8. ALDACTONE (SPIRONOLACTONE) [Concomitant]

REACTIONS (4)
  - Atrial tachycardia [None]
  - Cardiac ablation [None]
  - Sleep apnoea syndrome [None]
  - Hypertension [None]
